FAERS Safety Report 4762995-6 (Version None)
Quarter: 2005Q3

REPORT INFORMATION
  Report Type: 
  Country: None (occurrence: None)
  Receive Date: 20050907
  Receipt Date: 20050316
  Transmission Date: 20060218
  Serious: Yes (Hospitalization, Other)
  Sender: FDA-Public Use
  Company Number: US-MERCK-0503USA03210

PATIENT
  Age: 75 Year
  Sex: Male
  Weight: 89 kg

DRUGS (7)
  1. VIOXX [Suspect]
     Indication: BACK PAIN
     Route: 048
     Dates: start: 20010702, end: 20031111
  2. VIOXX [Suspect]
     Route: 048
  3. VIOXX [Suspect]
     Indication: ARTHRALGIA
     Route: 048
     Dates: start: 20010702, end: 20031111
  4. VIOXX [Suspect]
     Route: 048
  5. FLOMAX (MORNIFLUMATE) [Concomitant]
     Route: 065
  6. PREVACID [Concomitant]
     Route: 065
  7. PROSCAR [Concomitant]
     Route: 048

REACTIONS (33)
  - ACCIDENT [None]
  - ACUTE CORONARY SYNDROME [None]
  - ANGINA PECTORIS [None]
  - ARTHROPATHY [None]
  - BONE PAIN [None]
  - CARTILAGE INJURY [None]
  - CHEST DISCOMFORT [None]
  - CHEST PAIN [None]
  - CORONARY ARTERY DISEASE [None]
  - CORONARY ARTERY STENOSIS [None]
  - DYSPNOEA [None]
  - ERUCTATION [None]
  - FLANK PAIN [None]
  - GASTROINTESTINAL DISORDER [None]
  - HEADACHE [None]
  - HEART RATE INCREASED [None]
  - INTERVERTEBRAL DISC PROTRUSION [None]
  - LOWER GASTROINTESTINAL HAEMORRHAGE [None]
  - LUMBAR SPINAL STENOSIS [None]
  - MENISCUS LESION [None]
  - MUSCLE SPASMS [None]
  - MUSCLE STRAIN [None]
  - MUSCULOSKELETAL STIFFNESS [None]
  - MYOCARDIAL INFARCTION [None]
  - NAUSEA [None]
  - NEURALGIA [None]
  - OSTEOARTHRITIS [None]
  - PAIN [None]
  - SHOULDER PAIN [None]
  - SPINAL COLUMN STENOSIS [None]
  - SPINAL OSTEOARTHRITIS [None]
  - VENTRICULAR DYSFUNCTION [None]
  - WHIPLASH INJURY [None]
